FAERS Safety Report 20506271 (Version 2)
Quarter: 2022Q4

REPORT INFORMATION
  Report Type: Other
  Country: US (occurrence: None)
  Receive Date: 20220223
  Receipt Date: 20221013
  Transmission Date: 20230113
  Serious: Yes (Hospitalization)
  Sender: FDA-Public Use
  Company Number: US-ROCHE-2228399

PATIENT
  Sex: Female

DRUGS (2)
  1. VALCYTE [Suspect]
     Active Substance: VALGANCICLOVIR HYDROCHLORIDE
     Indication: Lung transplant
     Dosage: ^EVERY MONDAY WEDNESDAY FRIDAY^?450MG MONDAY, WEDNESDAY AND FRIDAY.?1 TABLET (450 MG) BY MOUTH TWICE
     Route: 048
     Dates: start: 20221004
  2. VALCYTE [Suspect]
     Active Substance: VALGANCICLOVIR HYDROCHLORIDE
     Indication: Postoperative care

REACTIONS (2)
  - COVID-19 [Unknown]
  - Off label use [Unknown]
